FAERS Safety Report 18628404 (Version 1)
Quarter: 2020Q4

REPORT INFORMATION
  Report Type: Report from Study
  Country: FR (occurrence: FR)
  Receive Date: 20201217
  Receipt Date: 20201217
  Transmission Date: 20210114
  Serious: Yes (Hospitalization)
  Sender: FDA-Public Use
  Company Number: FR-TAKEDA-FR202026064

PATIENT
  Age: 56 Year
  Sex: Male

DRUGS (8)
  1. TEDUGLUTIDE [Suspect]
     Active Substance: TEDUGLUTIDE
     Indication: SHORT-BOWEL SYNDROME
     Dosage: 3.160 MILLIGRAM, 1X/DAY:QD
     Route: 065
     Dates: start: 20181023
  2. TEDUGLUTIDE [Suspect]
     Active Substance: TEDUGLUTIDE
     Indication: SHORT-BOWEL SYNDROME
     Dosage: 3.160 MILLIGRAM, 1X/DAY:QD
     Route: 065
     Dates: start: 20181023
  3. POLARAMINE [Concomitant]
     Active Substance: DEXCHLORPHENIRAMINE MALEATE
     Indication: PRODUCT USED FOR UNKNOWN INDICATION
     Dosage: UNK UNK, SINGLE
     Route: 042
     Dates: start: 20201116, end: 20201116
  4. DAPTOMYCINE [Concomitant]
     Active Substance: DAPTOMYCIN
     Indication: PRODUCT USED FOR UNKNOWN INDICATION
     Dosage: 350 MILLIGRAM, QD
     Route: 042
     Dates: start: 20201117, end: 20201201
  5. TEDUGLUTIDE [Suspect]
     Active Substance: TEDUGLUTIDE
     Indication: SHORT-BOWEL SYNDROME
     Dosage: 3.160 MILLIGRAM, 1X/DAY:QD
     Route: 065
     Dates: start: 20181023
  6. VITAMIN K [PHYTOMENADIONE] [Concomitant]
     Indication: VITAMIN SUPPLEMENTATION
  7. TEDUGLUTIDE [Suspect]
     Active Substance: TEDUGLUTIDE
     Indication: SHORT-BOWEL SYNDROME
     Dosage: 3.160 MILLIGRAM, 1X/DAY:QD
     Route: 065
     Dates: start: 20181023
  8. TIXTAR [Concomitant]
     Active Substance: RIFAXIMIN
     Indication: PROPHYLAXIS

REACTIONS (4)
  - Drug hypersensitivity [Recovered/Resolved]
  - Acute kidney injury [Recovered/Resolved]
  - Device related infection [Recovered/Resolved]
  - Vascular device infection [Recovered/Resolved]

NARRATIVE: CASE EVENT DATE: 20191217
